FAERS Safety Report 6296147-8 (Version None)
Quarter: 2009Q3

REPORT INFORMATION
  Report Type: 
  Country: None (occurrence: None)
  Receive Date: 20090804
  Receipt Date: 20090720
  Transmission Date: 20100115
  Serious: Yes (Hospitalization, Other)
  Sender: FDA-Public Use
  Company Number: US-BIOGENIDEC-2008BI027732

PATIENT
  Sex: Female

DRUGS (2)
  1. TYSABRI [Suspect]
     Indication: MULTIPLE SCLEROSIS
     Route: 042
     Dates: start: 20071026, end: 20080814
  2. TYSABRI [Suspect]
     Route: 042
     Dates: start: 20090527

REACTIONS (4)
  - AMNESIA [None]
  - BACK PAIN [None]
  - OPTIC NEURITIS [None]
  - THROMBOSIS [None]
